FAERS Safety Report 10917920 (Version 1)
Quarter: 2015Q1

REPORT INFORMATION
  Report Type: Spontaneous
  Country: US (occurrence: US)
  Receive Date: 20150316
  Receipt Date: 20150316
  Transmission Date: 20150721
  Serious: Yes (Other)
  Sender: FDA-Public Use
  Company Number: US-ELI_LILLY_AND_COMPANY-US201503004206

PATIENT
  Age: 57 Year
  Sex: Female

DRUGS (1)
  1. PEMETREXED [Suspect]
     Active Substance: PEMETREXED
     Indication: NON-SMALL CELL LUNG CANCER

REACTIONS (6)
  - Cellulitis [Unknown]
  - Skin tightness [Recovered/Resolved]
  - Oedema peripheral [Recovered/Resolved]
  - Post thrombotic syndrome [Recovered/Resolved]
  - Oedema [Recovered/Resolved]
  - Perivascular dermatitis [Unknown]
